FAERS Safety Report 5560157-6 (Version None)
Quarter: 2007Q4

REPORT INFORMATION
  Report Type: 
  Country: None (occurrence: None)
  Receive Date: 20071214
  Receipt Date: 20071023
  Transmission Date: 20080405
  Serious: No
  Sender: FDA-Public Use
  Company Number: US-ABBOTT-07P-163-0422365-00

PATIENT
  Sex: Male
  Weight: 115.7 kg

DRUGS (4)
  1. HUMIRA [Suspect]
     Indication: PSORIASIS
     Route: 058
     Dates: start: 20070901
  2. HUMIRA [Suspect]
     Indication: RHEUMATOID ARTHRITIS
  3. SERTRALINE [Concomitant]
     Indication: BIPOLAR DISORDER
  4. LAMOTRIGINE [Concomitant]
     Indication: BIPOLAR DISORDER

REACTIONS (1)
  - SKIN ODOUR ABNORMAL [None]
